FAERS Safety Report 6909205-9 (Version None)
Quarter: 2010Q3

REPORT INFORMATION
  Report Type: 
  Country: None (occurrence: None)
  Receive Date: 20100805
  Receipt Date: 20100730
  Transmission Date: 20110219
  Serious: Yes (Death, Hospitalization, Other)
  Sender: FDA-Public Use
  Company Number: US-JNJFOC-20100800516

PATIENT
  Age: 63 Year
  Sex: Male

DRUGS (17)
  1. FENTANYL [Suspect]
     Indication: BREAKTHROUGH PAIN
     Route: 062
  2. FENTANYL [Suspect]
     Route: 062
  3. FENTANYL [Suspect]
     Route: 062
  4. OXYCODONE [Suspect]
     Indication: PAIN
     Route: 065
  5. METHADONE HCL [Suspect]
     Indication: BREAKTHROUGH PAIN
     Route: 065
  6. OXYCONTIN [Suspect]
     Indication: BREAKTHROUGH PAIN
     Route: 065
  7. DEXAMETHASONE [Suspect]
     Indication: BREAKTHROUGH PAIN
     Route: 065
  8. DILAUDID [Suspect]
     Indication: BREAKTHROUGH PAIN
     Route: 065
  9. METHADONE HCL [Suspect]
     Indication: PAIN
     Route: 065
  10. METHADONE HCL [Suspect]
     Route: 065
  11. HYDROMORPHONE [Suspect]
     Indication: PAIN
     Route: 042
  12. LORAZEPAM [Suspect]
     Indication: PAIN
     Route: 065
  13. LORAZEPAM [Suspect]
     Route: 065
  14. BUPIVACAINE HCL [Suspect]
     Indication: PRODUCT USED FOR UNKNOWN INDICATION
     Route: 065
  15. LIDOCAINE [Suspect]
     Indication: PRODUCT USED FOR UNKNOWN INDICATION
     Route: 065
  16. FENTANYL CITRATE [Suspect]
     Indication: PAIN
     Route: 065
  17. KETAMINE [Suspect]
     Indication: PRODUCT USED FOR UNKNOWN INDICATION
     Route: 065

REACTIONS (6)
  - ASTHENIA [None]
  - COMMUNICATION DISORDER [None]
  - DRUG INEFFECTIVE [None]
  - LOSS OF CONSCIOUSNESS [None]
  - MYOCLONUS [None]
  - NEUROTOXICITY [None]
